FAERS Safety Report 6346261-3 (Version None)
Quarter: 2009Q3

REPORT INFORMATION
  Report Type: 
  Country: None (occurrence: None)
  Receive Date: 20090909
  Receipt Date: 20090902
  Transmission Date: 20100115
  Serious: Yes (Hospitalization)
  Sender: FDA-Public Use
  Company Number: PHHY2009US37434

PATIENT
  Sex: Female

DRUGS (9)
  1. METOPROLOL [Suspect]
     Dosage: UNK
     Route: 064
  2. EXENATIDE [Suspect]
     Route: 064
  3. ROSIGLITAZONE [Concomitant]
     Route: 064
  4. METFORMIN HCL [Concomitant]
     Route: 064
  5. MONOPRIL [Concomitant]
     Route: 064
  6. INSULIN [Concomitant]
     Route: 064
  7. ATORVASTATIN [Concomitant]
     Route: 064
  8. ASPIRIN [Concomitant]
     Route: 064
  9. NITROFURANTOIN [Concomitant]
     Route: 064

REACTIONS (5)
  - DRUG EXPOSURE DURING PREGNANCY [None]
  - ENCEPHALOPATHY [None]
  - ESCHERICHIA SEPSIS [None]
  - FOETAL DISTRESS SYNDROME [None]
  - RESUSCITATION [None]
